FAERS Safety Report 20775138 (Version 1)
Quarter: 2022Q2

REPORT INFORMATION
  Report Type: Spontaneous
  Country: US (occurrence: None)
  Receive Date: 20220502
  Receipt Date: 20220502
  Transmission Date: 20220721
  Serious: No
  Sender: FDA-Public Use
  Company Number: None

PATIENT
  Age: 59 Year
  Sex: Female

DRUGS (1)
  1. COSENTYX [Suspect]
     Active Substance: SECUKINUMAB
     Dosage: OTHER QUANTITY : 300MG (2 PENS);?FREQUENCY : MONTHLY;?
     Route: 058
     Dates: start: 202106

REACTIONS (2)
  - Localised infection [None]
  - Therapy interrupted [None]
